FAERS Safety Report 14067138 (Version 1)
Quarter: 2017Q4

REPORT INFORMATION
  Report Type: Spontaneous
  Country: US (occurrence: US)
  Receive Date: 20171010
  Receipt Date: 20171010
  Transmission Date: 20180321
  Serious: No
  Sender: FDA-Public Use
  Company Number: US-BRISTOL-MYERS SQUIBB COMPANY-BMS-2017-089273

PATIENT
  Age: 9 Decade
  Sex: Female
  Weight: 79.83 kg

DRUGS (1)
  1. OPDIVO [Suspect]
     Active Substance: NIVOLUMAB
     Indication: VULVAL CANCER
     Dosage: 3 MG/KG, UNK
     Route: 042

REACTIONS (2)
  - Product use in unapproved indication [Unknown]
  - Conjunctivitis [Unknown]
